FAERS Safety Report 5247594-4 (Version None)
Quarter: 2007Q1

REPORT INFORMATION
  Report Type: 
  Country: None (occurrence: None)
  Receive Date: 20070227
  Receipt Date: 20070219
  Transmission Date: 20070707
  Serious: Yes (Hospitalization)
  Sender: FDA-Public Use
  Company Number: PT-AVENTIS-200711045GDDC

PATIENT
  Age: 58 Year
  Sex: Female

DRUGS (2)
  1. DOCETAXEL [Suspect]
     Route: 042
     Dates: start: 20061222, end: 20061222
  2. BEVACIZUMAB [Suspect]
     Route: 042
     Dates: start: 20061222, end: 20061222

REACTIONS (1)
  - ANAL FISSURE [None]
